FAERS Safety Report 7716034-5 (Version None)
Quarter: 2011Q3

REPORT INFORMATION
  Report Type: 
  Country: None (occurrence: None)
  Receive Date: 20110829
  Receipt Date: 20110817
  Transmission Date: 20111222
  Serious: Yes (Death, Hospitalization)
  Sender: FDA-Public Use
  Company Number: US-GLAXOSMITHKLINE-A0788926A

PATIENT
  Age: 67 Year
  Sex: Male
  Weight: 84.5 kg

DRUGS (8)
  1. AVANDIA [Suspect]
     Indication: DIABETES MELLITUS
     Dosage: 4MG PER DAY
     Route: 048
     Dates: start: 20050101, end: 20060401
  2. UNIRETIC [Concomitant]
  3. NORVASC [Concomitant]
  4. TOPROL-XL [Concomitant]
  5. AVANDAMET [Suspect]
     Indication: DIABETES MELLITUS
     Route: 048
  6. GLUCOTROL [Concomitant]
  7. VIAGRA [Concomitant]
  8. LIPITOR [Concomitant]

REACTIONS (5)
  - CARDIAC FAILURE [None]
  - CARDIAC DISORDER [None]
  - VENTRICULAR FIBRILLATION [None]
  - CARDIAC ARREST [None]
  - ACIDOSIS [None]
